FAERS Safety Report 7980826-8 (Version None)
Quarter: 2011Q4

REPORT INFORMATION
  Report Type: 
  Country: None (occurrence: None)
  Receive Date: 20111214
  Receipt Date: 20111205
  Transmission Date: 20120403
  Serious: Yes (Death, Hospitalization)
  Sender: FDA-Public Use
  Company Number: GB-CELGENEUS-167-21880-11113440

PATIENT
  Age: 83 Year
  Sex: Female
  Weight: 56.2 kg

DRUGS (3)
  1. CYCLOPHOSPHAMIDE [Suspect]
     Dosage: 500 MILLIGRAM
     Route: 048
     Dates: start: 20111109, end: 20111116
  2. REVLIMID [Suspect]
     Dosage: 25 MILLIGRAM
     Route: 048
     Dates: start: 20111109, end: 20111130
  3. DEXAMETHASONE [Suspect]
     Dosage: 20 MILLIGRAM
     Route: 048
     Dates: start: 20111109, end: 20111127

REACTIONS (3)
  - RENAL FAILURE [None]
  - CEREBROVASCULAR ACCIDENT [None]
  - INFECTION [None]
